FAERS Safety Report 26066385 (Version 1)
Quarter: 2025Q4

REPORT INFORMATION
  Report Type: Spontaneous
  Country: US (occurrence: US)
  Receive Date: 20251119
  Receipt Date: 20251119
  Transmission Date: 20260117
  Serious: Yes (Other)
  Sender: NOVO NORDISK
  Company Number: US-NOVOPROD-1323009

PATIENT
  Age: 31 Year
  Sex: Female
  Weight: 86.6 kg

DRUGS (1)
  1. NOVOLOG [Suspect]
     Active Substance: INSULIN ASPART
     Indication: Type 1 diabetes mellitus
     Dosage: 65-75 UNITS INSULIN IN PUMP DAILY
     Route: 058
     Dates: start: 201605, end: 202411

REACTIONS (3)
  - Blood glucose increased [Recovered/Resolved]
  - Liquid product physical issue [Not Recovered/Not Resolved]
  - Product quality issue [Recovered/Resolved]

NARRATIVE: CASE EVENT DATE: 20241101
